FAERS Safety Report 9424174 (Version 2)
Quarter: 2013Q3

REPORT INFORMATION
  Report Type: Spontaneous
  Country: PT (occurrence: PT)
  Receive Date: 20130729
  Receipt Date: 20130912
  Transmission Date: 20140515
  Serious: Yes (Death, Hospitalization)
  Sender: FDA-Public Use
  Company Number: PT-CELGENEUS-130-50794-12050385

PATIENT
  Age: 42 Year
  Sex: Female

DRUGS (6)
  1. VIDAZA [Suspect]
     Indication: CHRONIC MYELOMONOCYTIC LEUKAEMIA
     Dosage: 200 MILLIGRAM
     Route: 058
     Dates: start: 20100614
  2. VIDAZA [Suspect]
     Dosage: 200 MILLIGRAM
     Route: 058
     Dates: start: 20100712
  3. VIDAZA [Suspect]
     Dosage: 200 MILLIGRAM
     Route: 058
     Dates: start: 20100809
  4. VIDAZA [Suspect]
     Dosage: 200 MILLIGRAM
     Route: 058
     Dates: start: 20100906
  5. VIDAZA [Suspect]
     Dosage: 200 MILLIGRAM
     Route: 058
     Dates: start: 20101004
  6. VIDAZA [Suspect]
     Dosage: 200 MILLIGRAM
     Route: 058
     Dates: start: 20101101, end: 20101101

REACTIONS (2)
  - Chronic myelomonocytic leukaemia [Fatal]
  - No therapeutic response [Unknown]
